FAERS Safety Report 5708031-6 (Version None)
Quarter: 2008Q2

REPORT INFORMATION
  Report Type: 
  Country: None (occurrence: None)
  Receive Date: 20080417
  Receipt Date: 20080404
  Transmission Date: 20081010
  Serious: Yes (Hospitalization, Other)
  Sender: FDA-Public Use
  Company Number: US-AMGEN-QUU272933

PATIENT
  Sex: Female

DRUGS (2)
  1. ENBREL [Suspect]
     Indication: ANKYLOSING SPONDYLITIS
     Dates: start: 20030101
  2. UNSPECIFIED ANTI-INFLAMMATORY AGENT [Concomitant]

REACTIONS (7)
  - ALVEOLITIS ALLERGIC [None]
  - GAIT DISTURBANCE [None]
  - GENERAL PHYSICAL HEALTH DETERIORATION [None]
  - INFECTION [None]
  - PANCREATITIS [None]
  - RENAL FAILURE CHRONIC [None]
  - WEIGHT DECREASED [None]
